FAERS Safety Report 4984135-0 (Version None)
Quarter: 2006Q2

REPORT INFORMATION
  Report Type: 
  Country: None (occurrence: None)
  Receive Date: 20060427
  Receipt Date: 20060419
  Transmission Date: 20061013
  Serious: Yes (Hospitalization)
  Sender: FDA-Public Use
  Company Number: US-RB-3145-2006

PATIENT
  Sex: Male
  Weight: 95 kg

DRUGS (6)
  1. SUBOXONE [Suspect]
     Route: 060
     Dates: start: 20060227, end: 20060311
  2. SUBOXONE [Suspect]
     Route: 060
     Dates: start: 20060407, end: 20060417
  3. ESCITALOPRAM OXALATE [Concomitant]
     Indication: DEPRESSION
     Dosage: PATIENT HAS TAKEN FOR YEARS.
     Route: 048
  4. METOPROLOL SUCCINATE [Concomitant]
     Indication: HYPERTENSION
     Dosage: PATIENT HAS TAKEN FOR YEARS.
     Route: 048
  5. PANTOPRAZOLE [Concomitant]
     Route: 048
  6. ZOLPIDEM TARTRATE [Concomitant]
     Route: 048
     Dates: start: 20060407

REACTIONS (1)
  - SUICIDE ATTEMPT [None]
